FAERS Safety Report 4506167-9 (Version None)
Quarter: 2004Q4

REPORT INFORMATION
  Report Type: 
  Country: None (occurrence: None)
  Receive Date: 20041025
  Receipt Date: 20031008
  Transmission Date: 20050328
  Serious: Yes (Hospitalization)
  Sender: FDA-Public Use
  Company Number: US-JNJFOC-20030805187

PATIENT
  Age: 39 Year
  Sex: Female
  Weight: 58.0604 kg

DRUGS (2)
  1. REMICADE [Suspect]
     Indication: CROHN'S DISEASE
     Dosage: 285 MG, 1 IN 1 DAY, INTRAVENOUS
     Route: 042
     Dates: start: 20021002, end: 20021002
  2. REMICADE [Suspect]
     Indication: CROHN'S DISEASE
     Dosage: 285 MG, 1 IN 1 DAY, INTRAVENOUS
     Route: 042
     Dates: start: 20030813, end: 20030813

REACTIONS (1)
  - SERUM SICKNESS [None]
